FAERS Safety Report 16893710 (Version 1)
Quarter: 2019Q4

REPORT INFORMATION
  Report Type: Spontaneous
  Country: CA (occurrence: CA)
  Receive Date: 20191008
  Receipt Date: 20191008
  Transmission Date: 20200122
  Serious: Yes (Other)
  Sender: FDA-Public Use
  Company Number: CA-TEVA-2019-CA-1115900

PATIENT
  Age: 44 Year
  Sex: Male

DRUGS (13)
  1. DICLOFENAC SODIUM. [Suspect]
     Active Substance: DICLOFENAC SODIUM
     Indication: PRODUCT USED FOR UNKNOWN INDICATION
     Route: 065
  2. COSENTYX [Suspect]
     Active Substance: SECUKINUMAB
     Indication: PSORIATIC ARTHROPATHY
     Route: 058
  3. CANNABIS [Concomitant]
     Active Substance: CANNABIS SATIVA SUBSP. INDICA TOP
  4. CLOBETASOL /00337102/ [Concomitant]
     Active Substance: CLOBETASOL
  5. METHYLPREDNISOLONE NOS [Concomitant]
     Active Substance: METHYLPREDNISOLONE
  6. TOLTERODINE [Concomitant]
     Active Substance: TOLTERODINE
  7. BACLOFEN. [Suspect]
     Active Substance: BACLOFEN
     Indication: PRODUCT USED FOR UNKNOWN INDICATION
     Route: 065
  8. AMLODIPINE [Concomitant]
     Active Substance: AMLODIPINE BESYLATE
  9. MELOXICAM. [Concomitant]
     Active Substance: MELOXICAM
  10. ROSUVASTATIN. [Suspect]
     Active Substance: ROSUVASTATIN
     Indication: PRODUCT USED FOR UNKNOWN INDICATION
     Route: 065
  11. METHOTREXATE. [Suspect]
     Active Substance: METHOTREXATE
     Route: 065
  12. NAPROXEN EC [Concomitant]
     Active Substance: NAPROXEN
  13. IRBESARTAN. [Suspect]
     Active Substance: IRBESARTAN
     Indication: PRODUCT USED FOR UNKNOWN INDICATION
     Route: 065

REACTIONS (10)
  - Lipoma [Recovering/Resolving]
  - Prostatic specific antigen increased [Recovering/Resolving]
  - Arthralgia [Recovering/Resolving]
  - Blood pressure systolic increased [Recovering/Resolving]
  - Drug ineffective [Recovering/Resolving]
  - Seronegative arthritis [Recovering/Resolving]
  - Psoriasis [Recovering/Resolving]
  - Inflammatory marker increased [Recovering/Resolving]
  - Joint swelling [Recovering/Resolving]
  - Musculoskeletal discomfort [Recovering/Resolving]
